FAERS Safety Report 10049566 (Version 1)
Quarter: 2014Q1

REPORT INFORMATION
  Report Type: Spontaneous
  Country: US (occurrence: None)
  Receive Date: 20140331
  Receipt Date: 20140331
  Transmission Date: 20141002
  Serious: Yes (Hospitalization)
  Sender: FDA-Public Use
  Company Number: None

PATIENT
  Age: 77 Year
  Sex: Male
  Weight: 85 kg

DRUGS (8)
  1. STIVARGA 40MG BAYER [Suspect]
     Indication: COLON CANCER
     Dosage: 4 TABLETS, QD, ORAL
     Route: 048
     Dates: start: 20140315, end: 20140324
  2. ASPIRIN [Concomitant]
  3. HYDROCODONE/APAP [Concomitant]
  4. BEVACIZUMAB [Concomitant]
  5. PHENERGAN [Concomitant]
  6. ATORVASTATIN [Concomitant]
  7. WARFARIN [Concomitant]
  8. AMLODIPINE/BENAZEPRIL [Concomitant]

REACTIONS (2)
  - Melaena [None]
  - Gastrointestinal haemorrhage [None]
